FAERS Safety Report 5515527-9 (Version None)
Quarter: 2007Q4

REPORT INFORMATION
  Report Type: 
  Country: None (occurrence: None)
  Receive Date: 20071113
  Receipt Date: 20070319
  Transmission Date: 20080405
  Serious: No
  Sender: FDA-Public Use
  Company Number: A0643716A

PATIENT
  Age: 75 Year
  Sex: Female

DRUGS (5)
  1. COREG [Suspect]
     Indication: DRUG USE FOR UNKNOWN INDICATION
     Route: 048
     Dates: start: 20070101
  2. MICARDIS [Concomitant]
  3. LIPITOR [Concomitant]
  4. TRAMADOL [Concomitant]
  5. CIMETIDINE [Concomitant]

REACTIONS (1)
  - STOMACH DISCOMFORT [None]
